FAERS Safety Report 18475145 (Version 1)
Quarter: 2020Q4

REPORT INFORMATION
  Report Type: Spontaneous
  Country: PL (occurrence: PL)
  Receive Date: 20201106
  Receipt Date: 20201106
  Transmission Date: 20210114
  Serious: Yes (Death, Other)
  Sender: FDA-Public Use
  Company Number: NVSC2020PL283298

PATIENT
  Age: 33 Year
  Sex: Female

DRUGS (7)
  1. CAPECITABINE. [Suspect]
     Active Substance: CAPECITABINE
     Indication: METASTATIC NEOPLASM
  2. TEMOZOLOMIDE. [Suspect]
     Active Substance: TEMOZOLOMIDE
     Indication: METASTATIC CARCINOID TUMOUR
     Dosage: 200 MG/M2, PER DAY
     Route: 065
  3. EVEROLIMUS. [Suspect]
     Active Substance: EVEROLIMUS
     Indication: METASTATIC NEOPLASM
     Dosage: UNK (4 CYCLES)
     Route: 065
     Dates: start: 201811
  4. CAPECITABINE. [Suspect]
     Active Substance: CAPECITABINE
     Indication: METASTATIC CARCINOID TUMOUR
     Dosage: 1500 MG/M2, QD (750 MG/M2, 2X PER DAY)
     Route: 065
  5. TEMOZOLOMIDE. [Suspect]
     Active Substance: TEMOZOLOMIDE
     Indication: CARCINOID TUMOUR PULMONARY
     Dosage: 200 MG/M2, CYCLIC(DAY 10-14, 28-DAY CYCLE)(18 CYCLES-20 MONTHS)
     Route: 065
  6. TEMOZOLOMIDE. [Suspect]
     Active Substance: TEMOZOLOMIDE
     Indication: METASTATIC NEOPLASM
  7. CAPECITABINE. [Suspect]
     Active Substance: CAPECITABINE
     Indication: CARCINOID TUMOUR PULMONARY
     Dosage: 750 MG/M2, CYCLIC(DAY 1-14)(18 CYCLES-20 MONTHS)
     Route: 065

REACTIONS (10)
  - Metastases to liver [Fatal]
  - Neutropenia [Fatal]
  - Respiratory tract infection [Fatal]
  - Upper respiratory tract infection [Unknown]
  - Product use in unapproved indication [Unknown]
  - Thrombocytopenia [Fatal]
  - Metastases to bone [Fatal]
  - Metastases to breast [Fatal]
  - Infection [Unknown]
  - Anaemia [Fatal]
